FAERS Safety Report 8277369-3 (Version None)
Quarter: 2012Q2

REPORT INFORMATION
  Report Type: 
  Country: None (occurrence: None)
  Receive Date: 20120412
  Receipt Date: 20120330
  Transmission Date: 20120825
  Serious: Yes (Congenital Anomaly)
  Sender: FDA-Public Use
  Company Number: JP-ASTRAZENECA-2012SE17726

PATIENT
  Age: 1 Day
  Sex: Male
  Weight: 3.4 kg

DRUGS (13)
  1. DEXTROSE 50% [Concomitant]
     Dates: end: 20110616
  2. SEROQUEL [Suspect]
     Indication: FOETAL EXPOSURE DURING PREGNANCY
     Route: 064
     Dates: start: 20110101, end: 20111217
  3. ZOLPIDEM [Suspect]
     Indication: FOETAL EXPOSURE DURING PREGNANCY
     Route: 064
     Dates: start: 20100101, end: 20111217
  4. DEPAS [Concomitant]
     Indication: FOETAL EXPOSURE DURING PREGNANCY
     Route: 064
     Dates: start: 20110101, end: 20120129
  5. KAMIKIHITOU [Concomitant]
     Indication: FOETAL EXPOSURE DURING PREGNANCY
     Route: 064
     Dates: start: 20110101
  6. PHYSIO [Concomitant]
     Dates: end: 20110616
  7. 5 % GLUCOSE [Concomitant]
     Dates: end: 20110616
  8. ROHYPNOL [Concomitant]
     Indication: FOETAL EXPOSURE DURING PREGNANCY
     Route: 064
     Dates: start: 20110101
  9. LORAZEPAM [Concomitant]
     Indication: FOETAL EXPOSURE DURING PREGNANCY
     Route: 064
     Dates: start: 20110101
  10. BLONANSERIN [Concomitant]
     Indication: FOETAL EXPOSURE DURING PREGNANCY
     Route: 064
     Dates: start: 20110101
  11. ASCORBIC ACID [Concomitant]
     Dates: end: 20110616
  12. PRIMPERAN TAB [Suspect]
     Indication: FOETAL EXPOSURE DURING PREGNANCY
     Route: 064
     Dates: end: 20110616
  13. VITAMEDIN [Concomitant]
     Dates: end: 20110616

REACTIONS (2)
  - FEEDING DISORDER [None]
  - SOMNOLENCE [None]
